FAERS Safety Report 5494962-1 (Version None)
Quarter: 2007Q4

REPORT INFORMATION
  Report Type: 
  Country: None (occurrence: None)
  Receive Date: 20071024
  Receipt Date: 20071019
  Transmission Date: 20080405
  Serious: Yes (Other)
  Sender: FDA-Public Use
  Company Number: B0490672A

PATIENT
  Age: 78 Year
  Sex: Female
  Weight: 42 kg

DRUGS (10)
  1. PAXIL [Suspect]
     Indication: DEPRESSION
     Route: 048
     Dates: start: 20070703
  2. LOXONIN [Concomitant]
     Indication: OSTEOARTHRITIS
     Dosage: 120MG PER DAY
     Route: 048
     Dates: start: 20070731
  3. MUCOSTA [Concomitant]
     Indication: PROPHYLAXIS
     Dosage: 300MG PER DAY
     Route: 048
     Dates: start: 20070731
  4. NAUZELIN [Concomitant]
     Indication: PROPHYLAXIS
     Dosage: 15MG PER DAY
     Route: 048
     Dates: start: 20070717
  5. LIPITOR [Concomitant]
     Dosage: 10MG PER DAY
     Route: 048
     Dates: start: 20070717
  6. SLOW-K [Concomitant]
     Dosage: 600MG PER DAY
     Route: 048
     Dates: start: 20070731
  7. ADONA (AC-17) [Concomitant]
     Indication: RETINAL VEIN OCCLUSION
     Dosage: 90MG PER DAY
     Route: 048
     Dates: start: 20070703
  8. CARNACULIN [Concomitant]
     Indication: RETINAL VEIN OCCLUSION
     Dosage: 150MG PER DAY
     Route: 048
     Dates: start: 20070703
  9. XALATAN [Concomitant]
     Route: 031
     Dates: start: 20070703
  10. TIMOPTIC [Concomitant]
     Route: 031
     Dates: start: 20070703

REACTIONS (10)
  - BLOOD ALKALINE PHOSPHATASE INCREASED [None]
  - BLOOD POTASSIUM DECREASED [None]
  - GAMMA-GLUTAMYLTRANSFERASE DECREASED [None]
  - HAEMATOCRIT DECREASED [None]
  - HAEMOGLOBIN DECREASED [None]
  - MUSCLE SPASMS [None]
  - MYOCLONUS [None]
  - PROTEIN TOTAL DECREASED [None]
  - RED BLOOD CELL COUNT DECREASED [None]
  - SEROTONIN SYNDROME [None]
